FAERS Safety Report 5440975-5 (Version None)
Quarter: 2007Q3

REPORT INFORMATION
  Report Type: 
  Country: None (occurrence: None)
  Receive Date: 20070831
  Receipt Date: 20070824
  Transmission Date: 20080115
  Serious: Yes (Other)
  Sender: FDA-Public Use
  Company Number: US-PFIZER INC-2007021046

PATIENT
  Sex: Male
  Weight: 68 kg

DRUGS (8)
  1. LIPITOR [Suspect]
     Indication: BLOOD CHOLESTEROL INCREASED
  2. NORVASC [Suspect]
     Indication: HYPERTENSION
  3. ZOLOFT [Suspect]
     Indication: STRESS
  4. DILTIAZEM [Suspect]
     Indication: HYPERTENSION
  5. ASPIRIN [Concomitant]
  6. VITAMIN E [Concomitant]
  7. NITROGLYCERIN [Concomitant]
  8. FOLIC ACID [Concomitant]

REACTIONS (13)
  - BLOOD PRESSURE ABNORMAL [None]
  - BLOOD PRESSURE INCREASED [None]
  - CARDIAC OPERATION [None]
  - DECREASED APPETITE [None]
  - DYSPNOEA [None]
  - HEART RATE INCREASED [None]
  - HYPERTENSION [None]
  - LIBIDO DECREASED [None]
  - OEDEMA PERIPHERAL [None]
  - SEXUAL DYSFUNCTION [None]
  - STRESS [None]
  - VENTRICULAR EXTRASYSTOLES [None]
  - WEIGHT DECREASED [None]
